FAERS Safety Report 25417292 (Version 1)
Quarter: 2025Q2

REPORT INFORMATION
  Report Type: Report from Study
  Country: CA (occurrence: CA)
  Receive Date: 20250610
  Receipt Date: 20250610
  Transmission Date: 20250717
  Serious: Yes (Hospitalization, Other)
  Sender: TEVA
  Company Number: CA-TEVA-VS-3339187

PATIENT
  Age: 54 Year
  Sex: Female

DRUGS (5)
  1. AJOVY [Suspect]
     Active Substance: FREMANEZUMAB-VFRM
     Indication: Migraine prophylaxis
     Route: 058
     Dates: start: 20241221
  2. AMITRIPTYLINE [Concomitant]
     Active Substance: AMITRIPTYLINE
     Indication: Product used for unknown indication
  3. TOPIRAMATE [Concomitant]
     Active Substance: TOPIRAMATE
     Indication: Product used for unknown indication
  4. PROPRANOLOL [Concomitant]
     Active Substance: PROPRANOLOL HYDROCHLORIDE
     Indication: Product used for unknown indication
  5. UBRELVY [Concomitant]
     Active Substance: UBROGEPANT
     Indication: Migraine

REACTIONS (15)
  - Cellulitis [Unknown]
  - Adverse event [Unknown]
  - Nausea [Unknown]
  - Injection related reaction [Unknown]
  - Injection site induration [Unknown]
  - Injection site erythema [Recovered/Resolved]
  - Anaphylactic reaction [Unknown]
  - Injection site pruritus [Unknown]
  - Malaise [Unknown]
  - Discomfort [Unknown]
  - Injection site scar [Unknown]
  - Injection site bruising [Unknown]
  - Throat tightness [Unknown]
  - Injection site reaction [Unknown]
  - Fatigue [Unknown]

NARRATIVE: CASE EVENT DATE: 20250101
